FAERS Safety Report 7726862-8 (Version None)
Quarter: 2011Q3

REPORT INFORMATION
  Report Type: 
  Country: None (occurrence: None)
  Receive Date: 20110902
  Receipt Date: 20110822
  Transmission Date: 20111222
  Serious: Yes (Other)
  Sender: FDA-Public Use
  Company Number: BR-GENENTECH-321434

PATIENT
  Sex: Female

DRUGS (3)
  1. PYRIDOXINE HCL [Concomitant]
     Indication: PRODUCT USED FOR UNKNOWN INDICATION
  2. RITUXIMAB [Suspect]
     Indication: PRODUCT USED FOR UNKNOWN INDICATION
     Dosage: UNK
     Route: 065
     Dates: start: 20101101, end: 20101101
  3. ENALAPRIL MALEATE [Concomitant]
     Indication: PRODUCT USED FOR UNKNOWN INDICATION
     Dosage: 25 MG, UNK

REACTIONS (7)
  - DYSPEPSIA [None]
  - VOMITING [None]
  - WEIGHT DECREASED [None]
  - COUGH [None]
  - MEMORY IMPAIRMENT [None]
  - SYNCOPE [None]
  - ASTHENIA [None]
